FAERS Safety Report 4915742-9 (Version None)
Quarter: 2006Q1

REPORT INFORMATION
  Report Type: 
  Country: None (occurrence: None)
  Receive Date: 20060217
  Receipt Date: 20060203
  Transmission Date: 20060701
  Serious: Yes (Other)
  Sender: FDA-Public Use
  Company Number: US-KINGPHARMUSA00001-K200600158

PATIENT
  Age: 3 Year
  Sex: Female
  Weight: 23 kg

DRUGS (2)
  1. BREVITAL SODIUM FOR INJECTION [Suspect]
     Indication: ANAESTHESIA
     Dosage: 20 MG (20 ML), SINGLE
     Route: 042
     Dates: start: 20060123, end: 20060123
  2. FENTANYL [Concomitant]
     Dosage: .5 ML, SINGLE
     Dates: start: 20060123, end: 20060123

REACTIONS (4)
  - CONTUSION [None]
  - OXYGEN SATURATION DECREASED [None]
  - SOMNOLENCE [None]
  - VISION BLURRED [None]
